FAERS Safety Report 8866460 (Version 4)
Quarter: 2013Q3

REPORT INFORMATION
  Report Type: Report from Study
  Country: IN (occurrence: IN)
  Receive Date: 20121025
  Receipt Date: 20130821
  Transmission Date: 20140515
  Serious: No
  Sender: FDA-Public Use
  Company Number: IN-009507513-1210IND009917

PATIENT
  Age: 16 Year
  Sex: Male
  Weight: 85 kg

DRUGS (2)
  1. ASENAPINE MALEATE-SCHIZOPHRENIA [Suspect]
     Indication: SCHIZOPHRENIA
     Dosage: 2.5 MG, BID
     Route: 048
     Dates: start: 20120915, end: 20120916
  2. PARACETAMOL [Concomitant]
     Indication: PYREXIA
     Dosage: 500 MG, BID
     Route: 048
     Dates: start: 20121011, end: 20121014

REACTIONS (1)
  - Hypersensitivity [Recovered/Resolved]
